FAERS Safety Report 7462669-7 (Version None)
Quarter: 2011Q2

REPORT INFORMATION
  Report Type: 
  Country: None (occurrence: None)
  Receive Date: 20110506
  Receipt Date: 20110426
  Transmission Date: 20111010
  Serious: Yes (Death, Hospitalization)
  Sender: FDA-Public Use
  Company Number: JP-CELGENEUS-087-21880-10121556

PATIENT
  Sex: Male
  Weight: 46.7 kg

DRUGS (12)
  1. DEXAMETHASONE [Suspect]
     Indication: MULTIPLE MYELOMA
     Dosage: 80 MILLIGRAM
     Route: 048
     Dates: start: 20101106, end: 20101119
  2. WARFARIN [Concomitant]
     Indication: PROPHYLAXIS
     Dosage: 2.5 MILLIGRAM
     Route: 048
     Dates: start: 20101012, end: 20110123
  3. REVLIMID [Suspect]
     Indication: MULTIPLE MYELOMA
     Dosage: 25 MILLIGRAM
     Route: 048
     Dates: start: 20101105, end: 20101121
  4. REVLIMID [Suspect]
     Dosage: 20 MILLIGRAM
     Route: 048
     Dates: start: 20101227, end: 20110109
  5. DEXAMETHASONE [Suspect]
     Dosage: 40 MILLIGRAM
     Route: 048
     Dates: start: 20101206, end: 20101213
  6. REVLIMID [Suspect]
     Dosage: 25 MILLIGRAM
     Route: 048
     Dates: start: 20110110, end: 20110116
  7. REVLIMID [Suspect]
     Dosage: 15 MILLIGRAM
     Route: 048
     Dates: start: 20101211, end: 20101219
  8. DEXAMETHASONE [Suspect]
     Route: 048
     Dates: start: 20110103, end: 20110110
  9. REVLIMID [Suspect]
     Dosage: 10 MILLIGRAM
     Route: 048
     Dates: start: 20101206, end: 20101210
  10. REVLIMID [Suspect]
     Dosage: 5 MILLIGRAM
     Route: 048
     Dates: start: 20101129, end: 20101205
  11. DEXAMETHASONE [Suspect]
     Route: 048
     Dates: start: 20101227
  12. OXYCONTIN [Concomitant]
     Dosage: 5 MILLIGRAM
     Route: 048
     Dates: start: 20101018, end: 20101112

REACTIONS (4)
  - PYREXIA [None]
  - THROMBOCYTOPENIA [None]
  - NEUTROPENIA [None]
  - DECREASED APPETITE [None]
